FAERS Safety Report 22585977 (Version 1)
Quarter: 2023Q2

REPORT INFORMATION
  Report Type: Spontaneous
  Country: CN (occurrence: CN)
  Receive Date: 20230610
  Receipt Date: 20230610
  Transmission Date: 20230721
  Serious: Yes (Other)
  Sender: FDA-Public Use
  Company Number: CN-AMGEN-CHNSP2023097332

PATIENT
  Age: 59 Year
  Sex: Male
  Weight: 67 kg

DRUGS (3)
  1. KYPROLIS [Suspect]
     Active Substance: CARFILZOMIB
     Indication: Plasma cell myeloma
     Dosage: 60 MILLIGRAM
     Route: 042
     Dates: start: 20230518, end: 20230529
  2. DEXTROSE [Concomitant]
     Active Substance: DEXTROSE\DEXTROSE MONOHYDRATE
     Dosage: 50 MILLIGRAM
     Route: 042
     Dates: start: 20230518, end: 20230529
  3. STERILE WATER FOR INJECTION [Concomitant]
     Active Substance: WATER
     Dosage: 29 MILLILITER
     Route: 042
     Dates: start: 20230518, end: 20230529

REACTIONS (1)
  - Bradycardia [Recovering/Resolving]

NARRATIVE: CASE EVENT DATE: 20230518
